FAERS Safety Report 11625368 (Version 2)
Quarter: 2015Q4

REPORT INFORMATION
  Report Type: Spontaneous
  Country: US (occurrence: US)
  Receive Date: 20151013
  Receipt Date: 20151016
  Transmission Date: 20160304
  Serious: No
  Sender: FDA-Public Use
  Company Number: US-PFIZER INC-2015341086

PATIENT
  Age: 63 Year
  Sex: Female
  Weight: 58.96 kg

DRUGS (2)
  1. DUAVEE [Suspect]
     Active Substance: BAZEDOXIFENE ACETATE\ESTROGENS, CONJUGATED
     Indication: MENOPAUSE
  2. DUAVEE [Suspect]
     Active Substance: BAZEDOXIFENE ACETATE\ESTROGENS, CONJUGATED
     Indication: HOT FLUSH
     Dosage: 1X/DAY (ONE BAZEDOXIFENE ACETATE0.45MG/ CONJUGATED ESTROGENS 20MG CAPLET ONCE A DAY)
     Route: 048

REACTIONS (1)
  - Dizziness [Not Recovered/Not Resolved]
